FAERS Safety Report 17253677 (Version 2)
Quarter: 2020Q1

REPORT INFORMATION
  Report Type: Report from Study
  Country: FR (occurrence: FR)
  Receive Date: 20200109
  Receipt Date: 20200124
  Transmission Date: 20200409
  Serious: Yes (Death, Hospitalization)
  Sender: FDA-Public Use
  Company Number: FR-PFIZER INC-2016241248

PATIENT
  Age: 66 Year
  Sex: Male
  Weight: 88 kg

DRUGS (4)
  1. SUTENT [Suspect]
     Active Substance: SUNITINIB MALATE
     Dosage: 37.5 MG, 2 WEEKS ON/1 WEEK OFF
     Dates: start: 201508
  2. MEDIATENSYL /00631801/ [Concomitant]
     Active Substance: URAPIDIL
     Indication: HYPERTENSION
     Dosage: UNK
  3. SUTENT [Suspect]
     Active Substance: SUNITINIB MALATE
     Indication: RENAL CELL CARCINOMA
     Dosage: 40 MG, 1X/DAY
     Dates: start: 201506
  4. REPAGLINIDE. [Concomitant]
     Active Substance: REPAGLINIDE
     Indication: DIABETES MELLITUS
     Dosage: UNK

REACTIONS (11)
  - Nausea [Unknown]
  - Arthralgia [Recovered/Resolved]
  - Infection [Fatal]
  - Dyspnoea [Recovered/Resolved]
  - Erythema [Recovering/Resolving]
  - Gastrointestinal toxicity [Unknown]
  - Diarrhoea [Recovered/Resolved]
  - Mucosal inflammation [Recovering/Resolving]
  - Vomiting [Recovering/Resolving]
  - Respiratory distress [Fatal]
  - Limb injury [Recovered/Resolved]

NARRATIVE: CASE EVENT DATE: 20150813
